FAERS Safety Report 14782363 (Version 3)
Quarter: 2019Q1

REPORT INFORMATION
  Report Type: Spontaneous
  Country: US (occurrence: US)
  Receive Date: 20180420
  Receipt Date: 20190227
  Transmission Date: 20190417
  Serious: No
  Sender: FDA-Public Use
  Company Number: US-PFIZER INC-2018159192

PATIENT
  Age: 67 Year
  Sex: Female

DRUGS (1)
  1. LATANOPROST. [Suspect]
     Active Substance: LATANOPROST
     Indication: GLAUCOMA
     Dosage: UNK
     Dates: start: 2012, end: 2012

REACTIONS (10)
  - Lacrimation increased [Unknown]
  - Eye discharge [Unknown]
  - Eye irritation [Unknown]
  - Pain [Unknown]
  - Foreign body sensation in eyes [Unknown]
  - Pruritus [Unknown]
  - Dry eye [Unknown]
  - Drug hypersensitivity [Recovered/Resolved]
  - Drug intolerance [Unknown]
  - Burning sensation [Unknown]

NARRATIVE: CASE EVENT DATE: 2012
